FAERS Safety Report 13488005 (Version 1)
Quarter: 2017Q2

REPORT INFORMATION
  Report Type: Spontaneous
  Country: US (occurrence: US)
  Receive Date: 20170426
  Receipt Date: 20170426
  Transmission Date: 20170830
  Serious: No
  Sender: FDA-Public Use
  Company Number: US-ALKERMES INC.-ALK-2016-002319

PATIENT
  Age: 23 Year
  Sex: Female

DRUGS (2)
  1. TOPAMAX [Concomitant]
     Active Substance: TOPIRAMATE
     Indication: SEIZURE
     Dosage: UNK
     Route: 065
  2. VIVITROL [Suspect]
     Active Substance: NALTREXONE
     Indication: DRUG USE DISORDER
     Dosage: 308 MG, QMO
     Route: 030
     Dates: start: 20160808

REACTIONS (7)
  - Eye pain [Unknown]
  - Nausea [Unknown]
  - Ageusia [Unknown]
  - Migraine [Unknown]
  - Sleep disorder due to general medical condition, insomnia type [Unknown]
  - Fatigue [Unknown]
  - Dysgeusia [Unknown]

NARRATIVE: CASE EVENT DATE: 20160810
